FAERS Safety Report 19665109 (Version 7)
Quarter: 2021Q4

REPORT INFORMATION
  Report Type: Spontaneous
  Country: JP (occurrence: JP)
  Receive Date: 20210806
  Receipt Date: 20211230
  Transmission Date: 20220303
  Serious: Yes (Death, Life-Threatening, Hospitalization, Other)
  Sender: FDA-Public Use
  Company Number: JP-KYOWAKIRIN-2021AKK013371

PATIENT
  Age: 58 Year
  Sex: Female

DRUGS (69)
  1. PEGFILGRASTIM [Suspect]
     Active Substance: PEGFILGRASTIM
     Indication: Colony stimulating factor therapy
     Dosage: 3.6 MILLIGRAM
     Route: 058
     Dates: start: 20210323, end: 20210713
  2. DOCETAXEL [Suspect]
     Active Substance: DOCETAXEL
     Indication: Breast cancer
     Dosage: 200 MG
     Route: 041
     Dates: start: 20210611, end: 20210611
  3. DOCETAXEL [Suspect]
     Active Substance: DOCETAXEL
     Dosage: 200 MG
     Route: 041
     Dates: start: 20210709, end: 20210709
  4. EPIRUBICIN HYDROCHLORIDE [Suspect]
     Active Substance: EPIRUBICIN HYDROCHLORIDE
     Indication: Breast cancer
     Dosage: 125 MG
     Route: 041
     Dates: start: 20210319, end: 20210319
  5. EPIRUBICIN HYDROCHLORIDE [Suspect]
     Active Substance: EPIRUBICIN HYDROCHLORIDE
     Dosage: 125 MG
     Route: 041
     Dates: start: 20210409, end: 20210409
  6. EPIRUBICIN HYDROCHLORIDE [Suspect]
     Active Substance: EPIRUBICIN HYDROCHLORIDE
     Dosage: 125 MG
     Route: 041
     Dates: start: 20210430, end: 20210430
  7. EPIRUBICIN HYDROCHLORIDE [Suspect]
     Active Substance: EPIRUBICIN HYDROCHLORIDE
     Dosage: 125 MG
     Route: 041
     Dates: start: 20210521, end: 20210521
  8. CYCLOPHOSPHAMIDE [Suspect]
     Active Substance: CYCLOPHOSPHAMIDE
     Indication: Breast cancer
     Dosage: 700 MG
     Route: 041
     Dates: start: 20210319, end: 20210319
  9. CYCLOPHOSPHAMIDE [Suspect]
     Active Substance: CYCLOPHOSPHAMIDE
     Dosage: 700 MG
     Route: 041
     Dates: start: 20210409, end: 20210409
  10. CYCLOPHOSPHAMIDE [Suspect]
     Active Substance: CYCLOPHOSPHAMIDE
     Dosage: 700 MG
     Route: 041
     Dates: start: 20210430, end: 20210430
  11. CYCLOPHOSPHAMIDE [Suspect]
     Active Substance: CYCLOPHOSPHAMIDE
     Dosage: 700 MG
     Route: 041
     Dates: start: 20210521, end: 20210521
  12. APREPITANT [Concomitant]
     Active Substance: APREPITANT
     Indication: Prophylaxis of nausea and vomiting
     Dosage: 125 MG, QD
     Route: 048
     Dates: start: 20210319, end: 20210521
  13. APREPITANT [Concomitant]
     Active Substance: APREPITANT
     Dosage: 80 MG, QD
     Route: 048
     Dates: start: 20210320, end: 20210523
  14. DECADRON [Concomitant]
     Active Substance: DEXAMETHASONE
     Indication: Prophylaxis of nausea and vomiting
     Dosage: 4 MG, BID
     Route: 048
     Dates: start: 20210320, end: 20210712
  15. KYTRIL [Concomitant]
     Active Substance: GRANISETRON HYDROCHLORIDE
     Indication: Prophylaxis of nausea and vomiting
     Dosage: 1 MG, QD
     Route: 048
     Dates: start: 20210320, end: 20210714
  16. DOMPERIDONE [Concomitant]
     Active Substance: DOMPERIDONE
     Indication: Prophylaxis of nausea and vomiting
     Dosage: 30 MG, TID
     Route: 048
     Dates: start: 20210319
  17. DOMPERIDONE [Concomitant]
     Active Substance: DOMPERIDONE
     Indication: Dehydration
     Dosage: UNK
     Route: 065
  18. DOMPERIDONE [Concomitant]
     Active Substance: DOMPERIDONE
     Indication: Decreased appetite
     Dosage: UNK
     Route: 065
  19. DOMPERIDONE [Concomitant]
     Active Substance: DOMPERIDONE
     Indication: Nausea
     Dosage: UNK
     Route: 065
  20. DOMPERIDONE [Concomitant]
     Active Substance: DOMPERIDONE
     Indication: Vomiting
     Dosage: UNK
     Route: 065
  21. MAGNESIUM OXIDE [Concomitant]
     Active Substance: MAGNESIUM OXIDE
     Indication: Constipation
     Dosage: 660 MG, BID
     Route: 048
     Dates: start: 20210319, end: 20210325
  22. MAGNESIUM OXIDE [Concomitant]
     Active Substance: MAGNESIUM OXIDE
     Dosage: 990 MG, TID
     Route: 048
     Dates: start: 20210326, end: 20210408
  23. MAGNESIUM OXIDE [Concomitant]
     Active Substance: MAGNESIUM OXIDE
     Dosage: 1980 MG, TID
     Route: 048
     Dates: start: 20210409
  24. KETOPROFEN [Concomitant]
     Active Substance: KETOPROFEN
     Indication: Arthralgia
     Dosage: 40 MG, QD
     Dates: start: 20210420
  25. SODIUM FERROUS CITRATE [Concomitant]
     Active Substance: SODIUM FERROUS CITRATE
     Indication: Anaemia
     Dosage: 100 MG, BID
     Route: 048
     Dates: start: 20210430
  26. CEFDINIR [Concomitant]
     Active Substance: CEFDINIR
     Indication: White blood cell count decreased
     Dosage: 300 MG, TID
     Route: 048
     Dates: start: 20210618, end: 20210620
  27. MOSAPRIDE CITRATE [Concomitant]
     Active Substance: MOSAPRIDE CITRATE
     Indication: Nausea
     Dosage: 15 MG, TID
     Route: 048
     Dates: start: 20210702, end: 20210708
  28. ELIQUIS [Concomitant]
     Active Substance: APIXABAN
     Indication: Fibrin D dimer increased
     Dosage: 2.5 MG, QD
     Route: 048
     Dates: start: 20210727, end: 20210727
  29. ELIQUIS [Concomitant]
     Active Substance: APIXABAN
     Indication: Thrombosis
     Dosage: 2.5 MG
     Route: 065
  30. DIETARY SUPPLEMENT\PROBIOTICS [Concomitant]
     Active Substance: DIETARY SUPPLEMENT\PROBIOTICS
     Indication: Dysbiosis
     Dosage: 1 G, QD
     Route: 048
     Dates: start: 20210728, end: 20210728
  31. LOMERIZINE HYDROCHLORIDE [Concomitant]
     Active Substance: LOMERIZINE HYDROCHLORIDE
     Indication: Headache
     Dosage: 5 MG, QD
     Route: 048
     Dates: start: 20210728, end: 20210728
  32. MIYA-BM [Concomitant]
     Active Substance: CLOSTRIDIUM BUTYRICUM SPORES STRAIN M-55
     Indication: Dysbiosis
     Dosage: 1 DF, QD
     Route: 048
     Dates: start: 20210728, end: 20210728
  33. LANSOPRAZOLE [Concomitant]
     Active Substance: LANSOPRAZOLE
     Indication: Prophylaxis against gastrointestinal ulcer
     Dosage: 15 MG, QD
     Route: 048
     Dates: start: 20210728, end: 20210728
  34. ICOSAPENT ETHYL [Concomitant]
     Active Substance: ICOSAPENT ETHYL
     Indication: Arteriosclerosis
     Dosage: 900 MG, QD
     Route: 048
     Dates: start: 20210728, end: 20210728
  35. CARBOCYSTEINE [Concomitant]
     Active Substance: CARBOCYSTEINE
     Indication: Productive cough
     Dosage: 500 MG, QD
     Route: 048
     Dates: start: 20210728, end: 20210728
  36. CILOSTAZOL [Concomitant]
     Active Substance: CILOSTAZOL
     Indication: Thrombosis prophylaxis
     Dosage: 100 MG, QD
     Route: 048
     Dates: start: 20210728, end: 20210728
  37. SODIUM CHLORIDE [Concomitant]
     Active Substance: SODIUM CHLORIDE
     Indication: Product used for unknown indication
     Dosage: 500 ML
     Route: 041
     Dates: start: 20210319, end: 20210319
  38. SODIUM CHLORIDE [Concomitant]
     Active Substance: SODIUM CHLORIDE
     Dosage: 500 ML
     Route: 041
     Dates: start: 20210409, end: 20210409
  39. SODIUM CHLORIDE [Concomitant]
     Active Substance: SODIUM CHLORIDE
     Dosage: 500 ML
     Route: 041
     Dates: start: 20210430, end: 20210430
  40. SODIUM CHLORIDE [Concomitant]
     Active Substance: SODIUM CHLORIDE
     Dosage: 500 ML
     Route: 041
     Dates: start: 20210521, end: 20210521
  41. SODIUM CHLORIDE [Concomitant]
     Active Substance: SODIUM CHLORIDE
     Dosage: 450 ML
     Route: 041
     Dates: start: 20210611, end: 20210611
  42. SODIUM CHLORIDE [Concomitant]
     Active Substance: SODIUM CHLORIDE
     Dosage: 450 ML
     Route: 041
     Dates: start: 20210709, end: 20210709
  43. DECADRON (DEXAMETHASONE SODIUM PHOSPHATE) [Concomitant]
     Active Substance: DEXAMETHASONE SODIUM PHOSPHATE
     Indication: Product used for unknown indication
     Dosage: 16.5 MG
     Route: 041
     Dates: start: 20210319, end: 20210319
  44. DECADRON (DEXAMETHASONE SODIUM PHOSPHATE) [Concomitant]
     Active Substance: DEXAMETHASONE SODIUM PHOSPHATE
     Dosage: 16.5 MG
     Route: 041
     Dates: start: 20210409, end: 20210409
  45. DECADRON (DEXAMETHASONE SODIUM PHOSPHATE) [Concomitant]
     Active Substance: DEXAMETHASONE SODIUM PHOSPHATE
     Dosage: 16.5 MG
     Route: 041
     Dates: start: 20210430, end: 20210430
  46. DECADRON (DEXAMETHASONE SODIUM PHOSPHATE) [Concomitant]
     Active Substance: DEXAMETHASONE SODIUM PHOSPHATE
     Dosage: 16.5 MG
     Route: 041
     Dates: start: 20210521, end: 20210521
  47. DECADRON (DEXAMETHASONE SODIUM PHOSPHATE) [Concomitant]
     Active Substance: DEXAMETHASONE SODIUM PHOSPHATE
     Dosage: 6.6 MG
     Route: 041
     Dates: start: 20210611, end: 20210611
  48. DECADRON (DEXAMETHASONE SODIUM PHOSPHATE) [Concomitant]
     Active Substance: DEXAMETHASONE SODIUM PHOSPHATE
     Dosage: 6.6 MG
     Route: 041
     Dates: start: 20210709, end: 20210709
  49. CHLORPHENIRAMINE MALEATE [Concomitant]
     Active Substance: CHLORPHENIRAMINE MALEATE
     Indication: Product used for unknown indication
     Dosage: 10 MG
     Route: 041
     Dates: start: 20210611, end: 20210611
  50. CHLORPHENIRAMINE MALEATE [Concomitant]
     Active Substance: CHLORPHENIRAMINE MALEATE
     Dosage: 10 MG
     Route: 041
     Dates: start: 20210709, end: 20210709
  51. VEEN D [Concomitant]
     Active Substance: CALCIUM CHLORIDE\DEXTROSE\POTASSIUM CHLORIDE\SODIUM ACETATE\SODIUM CHLORIDE
     Indication: Nausea
     Dosage: 500 ML
     Route: 041
     Dates: start: 20210721, end: 20210727
  52. VEEN D [Concomitant]
     Active Substance: CALCIUM CHLORIDE\DEXTROSE\POTASSIUM CHLORIDE\SODIUM ACETATE\SODIUM CHLORIDE
     Indication: Dehydration
     Dosage: 500 ML
     Route: 041
     Dates: start: 20210702, end: 20210703
  53. VEEN D [Concomitant]
     Active Substance: CALCIUM CHLORIDE\DEXTROSE\POTASSIUM CHLORIDE\SODIUM ACETATE\SODIUM CHLORIDE
     Indication: Decreased appetite
     Dosage: 1000 ML
     Route: 041
     Dates: start: 20210720, end: 20210720
  54. POTASSIUM CHLORIDE\SODIUM CHLORIDE\SODIUM LACTATE [Concomitant]
     Active Substance: POTASSIUM CHLORIDE\SODIUM CHLORIDE\SODIUM LACTATE
     Indication: Nausea
     Dosage: 500 ML
     Route: 041
     Dates: start: 20210720, end: 20210727
  55. POTASSIUM CHLORIDE\SODIUM CHLORIDE\SODIUM LACTATE [Concomitant]
     Active Substance: POTASSIUM CHLORIDE\SODIUM CHLORIDE\SODIUM LACTATE
     Indication: Dehydration
     Dosage: 500 ML
     Route: 041
     Dates: start: 20210702, end: 20210703
  56. POTASSIUM CHLORIDE\SODIUM CHLORIDE\SODIUM LACTATE [Concomitant]
     Active Substance: POTASSIUM CHLORIDE\SODIUM CHLORIDE\SODIUM LACTATE
     Indication: Decreased appetite
     Dosage: UNK
     Route: 065
  57. PRIMPERAN [Concomitant]
     Active Substance: METOCLOPRAMIDE HYDROCHLORIDE
     Indication: Nausea
     Dosage: 20 MG
     Route: 041
     Dates: start: 20210720, end: 20210727
  58. PRIMPERAN [Concomitant]
     Active Substance: METOCLOPRAMIDE HYDROCHLORIDE
     Indication: Vomiting
     Dosage: UNK
     Route: 065
  59. AMINO ACIDS\DEXTROSE\ELECTROLYTES NOS\VITAMINS [Concomitant]
     Active Substance: AMINO ACIDS\DEXTROSE\ELECTROLYTES NOS\VITAMINS
     Indication: Nausea
     Dosage: 500 ML
     Route: 041
     Dates: start: 20210720, end: 20210726
  60. AMINO ACIDS\DEXTROSE\ELECTROLYTES NOS\VITAMINS [Concomitant]
     Active Substance: AMINO ACIDS\DEXTROSE\ELECTROLYTES NOS\VITAMINS
     Indication: Dehydration
     Dosage: UNK
     Route: 065
  61. AMINO ACIDS\DEXTROSE\ELECTROLYTES NOS\VITAMINS [Concomitant]
     Active Substance: AMINO ACIDS\DEXTROSE\ELECTROLYTES NOS\VITAMINS
     Indication: Decreased appetite
     Dosage: UNK
     Route: 065
  62. FAMOTIDINE SAWAI [Concomitant]
     Indication: Product used for unknown indication
     Dosage: 20 MG
     Route: 041
     Dates: start: 20210319, end: 20210319
  63. FAMOTIDINE SAWAI [Concomitant]
     Dosage: 20 MG
     Route: 041
     Dates: start: 20210409, end: 20210409
  64. FAMOTIDINE SAWAI [Concomitant]
     Dosage: 20 MG
     Route: 041
     Dates: start: 20210430, end: 20210430
  65. FAMOTIDINE SAWAI [Concomitant]
     Dosage: 20 MG
     Route: 041
     Dates: start: 20210521, end: 20210521
  66. ALOXI [Concomitant]
     Active Substance: PALONOSETRON HYDROCHLORIDE
     Indication: Product used for unknown indication
     Dosage: 0.75 MG
     Route: 041
     Dates: start: 20210319, end: 20210319
  67. ALOXI [Concomitant]
     Active Substance: PALONOSETRON HYDROCHLORIDE
     Dosage: 0.75 MG
     Route: 041
     Dates: start: 20210409, end: 20210409
  68. ALOXI [Concomitant]
     Active Substance: PALONOSETRON HYDROCHLORIDE
     Dosage: 0.75 MG
     Route: 041
     Dates: start: 20210430, end: 20210430
  69. ALOXI [Concomitant]
     Active Substance: PALONOSETRON HYDROCHLORIDE
     Dosage: 0.75 MG
     Route: 041
     Dates: start: 20210521, end: 20210521

REACTIONS (18)
  - Cerebral infarction [Fatal]
  - Cerebral vasoconstriction [Fatal]
  - Fibrin D dimer increased [Unknown]
  - Headache [Unknown]
  - Arteriosclerosis [Unknown]
  - Vasculitis [Unknown]
  - Thrombophlebitis migrans [Unknown]
  - Meningitis [Unknown]
  - Thrombosis [Unknown]
  - Dehydration [Unknown]
  - Nausea [Unknown]
  - Decreased appetite [Not Recovered/Not Resolved]
  - Vomiting [Unknown]
  - Nausea [Unknown]
  - Anaemia [Unknown]
  - White blood cell count decreased [Recovered/Resolved]
  - Pyrexia [Recovered/Resolved]
  - Arthralgia [Recovering/Resolving]

NARRATIVE: CASE EVENT DATE: 20210420
